FAERS Safety Report 9340878 (Version 1)
Quarter: 2013Q2

REPORT INFORMATION
  Report Type: Spontaneous
  Country: JP (occurrence: JP)
  Receive Date: 20130610
  Receipt Date: 20130610
  Transmission Date: 20140414
  Serious: Yes (Hospitalization)
  Sender: FDA-Public Use
  Company Number: JP-B.I. PHARMACEUTICALS,INC./RIDGEFIELD-2013-BI-13395NB

PATIENT
  Age: 84 Year
  Sex: Female

DRUGS (4)
  1. TRAZENTA [Suspect]
     Dosage: 5 MG
     Route: 065
     Dates: start: 20130411, end: 20130508
  2. AMARYL [Concomitant]
     Dosage: 0.5 MG
     Route: 065
     Dates: start: 20120604
  3. ARGAMATE [Concomitant]
     Dosage: 25 G
     Route: 065
     Dates: start: 20130116
  4. XARELTO [Concomitant]
     Dosage: 10 MG
     Route: 065
     Dates: start: 20130213

REACTIONS (1)
  - Liver disorder [Not Recovered/Not Resolved]
